FAERS Safety Report 9732445 (Version 2)
Quarter: 2013Q4

REPORT INFORMATION
  Report Type: Report from Study
  Country: US (occurrence: US)
  Receive Date: 20131204
  Receipt Date: 20131226
  Transmission Date: 20140711
  Serious: Yes (Hospitalization)
  Sender: FDA-Public Use
  Company Number: PHHO2013US015424

PATIENT
  Age: 38 Year
  Sex: Male
  Weight: 92.7 kg

DRUGS (4)
  1. LBH589 [Suspect]
     Indication: HODGKIN^S DISEASE
     Dosage: 30 MG, QW3
     Route: 048
     Dates: start: 20131031
  2. CARBOPLATIN [Concomitant]
     Indication: HODGKIN^S DISEASE
     Route: 042
     Dates: start: 20131031
  3. IFOSFAMIDE [Concomitant]
     Indication: HODGKIN^S DISEASE
     Route: 042
     Dates: start: 20131031
  4. ETOPOSIDE [Concomitant]
     Indication: HODGKIN^S DISEASE
     Route: 042
     Dates: start: 20131031

REACTIONS (1)
  - Gouty arthritis [Recovered/Resolved]
